FAERS Safety Report 15566613 (Version 2)
Quarter: 2018Q4

REPORT INFORMATION
  Report Type: Spontaneous
  Country: US (occurrence: US)
  Receive Date: 20181030
  Receipt Date: 20181127
  Transmission Date: 20190205
  Serious: Yes (Other)
  Sender: FDA-Public Use
  Company Number: US-GLAXOSMITHKLINE-US2018192723

PATIENT
  Sex: Male

DRUGS (2)
  1. LAMICTAL XR [Suspect]
     Active Substance: LAMOTRIGINE
     Indication: EPILEPSY
     Dosage: UNK UNK, Z
  2. LAMOTRIGINE PROLONGED-RELEASE TABLET [Suspect]
     Active Substance: LAMOTRIGINE
     Indication: EPILEPSY
     Dosage: UNK UNK, Z
     Dates: start: 2015

REACTIONS (6)
  - Product substitution issue [Unknown]
  - Condition aggravated [Unknown]
  - Drug effect incomplete [Unknown]
  - Seizure [Unknown]
  - Drug ineffective [Unknown]
  - Therapeutic response changed [Unknown]
